FAERS Safety Report 13501030 (Version 3)
Quarter: 2018Q2

REPORT INFORMATION
  Report Type: Spontaneous
  Country: US (occurrence: US)
  Receive Date: 20170501
  Receipt Date: 20180507
  Transmission Date: 20180711
  Serious: No
  Sender: FDA-Public Use
  Company Number: US-ROCHE-1860812

PATIENT
  Sex: Female

DRUGS (10)
  1. PROAIR HFA [Concomitant]
     Active Substance: ALBUTEROL SULFATE
  2. MONTELUKAST [Concomitant]
     Active Substance: MONTELUKAST SODIUM
  3. ATIVAN [Concomitant]
     Active Substance: LORAZEPAM
  4. FLOVENT [Concomitant]
     Active Substance: FLUTICASONE PROPIONATE
  5. TEGRETOL [Concomitant]
     Active Substance: CARBAMAZEPINE
  6. LORAZEPAM. [Concomitant]
     Active Substance: LORAZEPAM
  7. SINGULAIR [Concomitant]
     Active Substance: MONTELUKAST SODIUM
  8. ESBRIET [Suspect]
     Active Substance: PIRFENIDONE
     Indication: PULMONARY FIBROSIS
     Route: 048
     Dates: start: 20161129
  9. ALBUTEROL. [Concomitant]
     Active Substance: ALBUTEROL
  10. DOCETAXEL. [Concomitant]
     Active Substance: DOCETAXEL

REACTIONS (7)
  - Nasopharyngitis [Unknown]
  - Epistaxis [Unknown]
  - Pneumonia [Unknown]
  - Productive cough [Unknown]
  - Weight decreased [Unknown]
  - Lung infection [Unknown]
  - Abdominal discomfort [Unknown]
